FAERS Safety Report 6238950-6 (Version None)
Quarter: 2009Q2

REPORT INFORMATION
  Report Type: 
  Country: None (occurrence: None)
  Receive Date: 20090622
  Receipt Date: 20090615
  Transmission Date: 20091009
  Serious: Yes (Hospitalization)
  Sender: FDA-Public Use
  Company Number: FR-AVENTIS-200912217FR

PATIENT
  Age: 86 Year
  Sex: Male

DRUGS (2)
  1. LASILIX                            /00032601/ [Suspect]
     Indication: DRUG USE FOR UNKNOWN INDICATION
     Route: 048
  2. ALDACTONE [Suspect]
     Indication: DRUG USE FOR UNKNOWN INDICATION
     Route: 048
     Dates: start: 20090402, end: 20090424

REACTIONS (3)
  - CONFUSIONAL STATE [None]
  - OLIGURIA [None]
  - RENAL FAILURE ACUTE [None]
